FAERS Safety Report 12215515 (Version 1)
Quarter: 2016Q1

REPORT INFORMATION
  Report Type: Spontaneous
  Country: US (occurrence: US)
  Receive Date: 20160328
  Receipt Date: 20160328
  Transmission Date: 20160526
  Serious: Yes (Other)
  Sender: FDA-Public Use
  Company Number: PHEH2016US007355

PATIENT
  Age: 70 Year
  Sex: Female

DRUGS (2)
  1. RECLAST [Suspect]
     Active Substance: ZOLEDRONIC ACID
     Indication: OSTEOPOROSIS
     Route: 041
     Dates: start: 20151020
  2. NEXIUM [Concomitant]
     Active Substance: ESOMEPRAZOLE MAGNESIUM
     Indication: GASTROOESOPHAGEAL REFLUX DISEASE
     Dosage: 20 MG, QHS (ONE EVERY NIGHT)
     Route: 065

REACTIONS (5)
  - Lip dry [Unknown]
  - Dysgeusia [Unknown]
  - Cellulitis [Recovered/Resolved]
  - Limb injury [Unknown]
  - Influenza [Unknown]

NARRATIVE: CASE EVENT DATE: 201602
